FAERS Safety Report 10227088 (Version 3)
Quarter: 2014Q3

REPORT INFORMATION
  Report Type: Spontaneous
  Country: US (occurrence: None)
  Receive Date: 20140606
  Receipt Date: 20140722
  Transmission Date: 20150326
  Serious: Yes (Hospitalization)
  Sender: FDA-Public Use
  Company Number: UNT-2014-000755

PATIENT
  Age: 60 Year
  Sex: Female
  Weight: 68 kg

DRUGS (1)
  1. TYVASO [Suspect]
     Active Substance: TREPROSTINIL
     Indication: COR PULMONALE CHRONIC
     Dosage: 72 UG QID, INHALED
     Route: 055
     Dates: start: 20130828

REACTIONS (7)
  - Gastroenteritis [None]
  - Gastrointestinal pain [None]
  - Respiratory failure [None]
  - Pain [None]
  - Gastritis [None]
  - Dyspnoea [None]
  - Carbon dioxide increased [None]

NARRATIVE: CASE EVENT DATE: 20140513
